FAERS Safety Report 14485430 (Version 1)
Quarter: 2018Q1

REPORT INFORMATION
  Report Type: Spontaneous
  Country: US (occurrence: US)
  Receive Date: 20180205
  Receipt Date: 20180205
  Transmission Date: 20180509
  Serious: Yes (Other)
  Sender: FDA-Public Use
  Company Number: US-PFM-2017-06781

PATIENT

DRUGS (6)
  1. TYKERB [Suspect]
     Active Substance: LAPATINIB DITOSYLATE
     Dosage: 1000 MG, QD (1/DAY)
     Route: 048
     Dates: start: 20170411
  2. TYKERB [Suspect]
     Active Substance: LAPATINIB DITOSYLATE
     Indication: BREAST CANCER
     Dosage: 1250 MG, QD (1/DAY)
     Route: 048
     Dates: start: 201703
  3. NAVELBINE [Suspect]
     Active Substance: VINORELBINE TARTRATE
     Indication: BREAST CANCER
     Dosage: 50 MG SINGLE
     Route: 042
     Dates: start: 20170310
  4. NAVELBINE [Suspect]
     Active Substance: VINORELBINE TARTRATE
     Dosage: 30 MG, SINGLE
     Route: 042
     Dates: start: 20170317
  5. NAVELBINE [Suspect]
     Active Substance: VINORELBINE TARTRATE
     Dosage: 30 MG, CYCLICAL
     Route: 042
     Dates: start: 20170411
  6. TYKERB [Suspect]
     Active Substance: LAPATINIB DITOSYLATE
     Dosage: 1000 MG, QD (1/DAY)
     Route: 048
     Dates: start: 20170317

REACTIONS (8)
  - Neutropenia [Recovered/Resolved]
  - Pyrexia [Recovered/Resolved]
  - Constipation [Recovered/Resolved]
  - Weight decreased [Recovered/Resolved]
  - Asthenia [Recovered/Resolved]
  - Chills [Recovered/Resolved]
  - Malaise [Recovered/Resolved]
  - Nausea [Recovered/Resolved]

NARRATIVE: CASE EVENT DATE: 20170313
